FAERS Safety Report 20381778 (Version 1)
Quarter: 2022Q1

REPORT INFORMATION
  Report Type: Spontaneous
  Country: US (occurrence: US)
  Receive Date: 20220127
  Receipt Date: 20220127
  Transmission Date: 20220424
  Serious: No
  Sender: FDA-Public Use
  Company Number: US-PCCINC-2021-PEL-000634

PATIENT

DRUGS (2)
  1. GABLOFEN [Suspect]
     Active Substance: BACLOFEN
     Indication: Muscle spasticity
     Dosage: 927.4 MICROGRAM PER DAY
     Route: 037
  2. GABLOFEN [Suspect]
     Active Substance: BACLOFEN
     Indication: Cerebral palsy
     Dosage: 1500 MICROGRAM/DAY
     Route: 037

REACTIONS (2)
  - Muscle tightness [Not Recovered/Not Resolved]
  - Therapy interrupted [Recovered/Resolved]

NARRATIVE: CASE EVENT DATE: 20200925
